FAERS Safety Report 5380301-3 (Version None)
Quarter: 2007Q3

REPORT INFORMATION
  Report Type: 
  Country: None (occurrence: None)
  Receive Date: 20070706
  Receipt Date: 20070629
  Transmission Date: 20080115
  Serious: Yes (Hospitalization)
  Sender: FDA-Public Use
  Company Number: US-BAYER-200711938BWH

PATIENT
  Age: 62 Year
  Sex: Female
  Weight: 68 kg

DRUGS (4)
  1. NEXAVAR [Suspect]
     Indication: CERVIX CANCER METASTATIC
     Dosage: TOTAL DAILY DOSE: 800 MG  UNIT DOSE: 200 MG
     Route: 048
     Dates: start: 20070522, end: 20070618
  2. TARCEVA [Concomitant]
     Dates: start: 20061101, end: 20070618
  3. CISPLATIN [Concomitant]
     Route: 042
     Dates: start: 20070522, end: 20070618
  4. HYCAMTIN [Concomitant]
     Dates: start: 20070522, end: 20070618

REACTIONS (10)
  - BLOOD MAGNESIUM DECREASED [None]
  - DEHYDRATION [None]
  - DIARRHOEA [None]
  - DISORIENTATION [None]
  - DRY SKIN [None]
  - HAEMOGLOBIN DECREASED [None]
  - HEADACHE [None]
  - PARAESTHESIA [None]
  - PLATELET COUNT DECREASED [None]
  - PRURITUS [None]
